FAERS Safety Report 17055237 (Version 1)
Quarter: 2019Q4

REPORT INFORMATION
  Report Type: Spontaneous
  Country: DE (occurrence: DE)
  Receive Date: 20191120
  Receipt Date: 20191120
  Transmission Date: 20200122
  Serious: Yes (Other)
  Sender: FDA-Public Use
  Company Number: DE-ANIPHARMA-2019-DE-000158

PATIENT
  Sex: Male

DRUGS (1)
  1. CANDESARTAN CILEXETIL. [Suspect]
     Active Substance: CANDESARTAN CILEXETIL
     Indication: HYPERTENSION
     Dosage: 4 MG UNK / 32 MG UNK / DOSE TEXT: 16 MG (HALF DOSAGE FORM OF 32 MG TABLET) / DOSE TEXT: 16 MG (TWO-D
     Route: 048

REACTIONS (3)
  - Weight decreased [Unknown]
  - Wrong technique in product usage process [Unknown]
  - Hypertension [Unknown]

NARRATIVE: CASE EVENT DATE: 2019
